FAERS Safety Report 14116766 (Version 1)
Quarter: 2017Q4

REPORT INFORMATION
  Report Type: Spontaneous
  Country: US (occurrence: US)
  Receive Date: 20171023
  Receipt Date: 20171023
  Transmission Date: 20180321
  Serious: Yes (Hospitalization, Other)
  Sender: FDA-Public Use
  Company Number: US-SA-2017SA202977

PATIENT
  Age: 22 Year
  Sex: Female

DRUGS (2)
  1. CERDELGA [Concomitant]
     Active Substance: ELIGLUSTAT
     Route: 065
  2. CEREZYME [Suspect]
     Active Substance: IMIGLUCERASE
     Indication: GAUCHER^S DISEASE
     Dosage: DOSE:6000 UNIT(S)
     Route: 041

REACTIONS (4)
  - Pneumonia [Not Recovered/Not Resolved]
  - Suicidal ideation [Not Recovered/Not Resolved]
  - Neuroleptic malignant syndrome [Not Recovered/Not Resolved]
  - Sepsis [Not Recovered/Not Resolved]
